FAERS Safety Report 10713884 (Version 1)
Quarter: 2015Q1

REPORT INFORMATION
  Report Type: Spontaneous
  Country: SE (occurrence: SE)
  Receive Date: 20150115
  Receipt Date: 20150115
  Transmission Date: 20150721
  Serious: Yes (Hospitalization)
  Sender: FDA-Public Use
  Company Number: SE-ABBVIE-14P-150-1319590-00

PATIENT
  Sex: Male

DRUGS (2)
  1. DUODOPA [Suspect]
     Active Substance: CARBIDOPA\LEVODOPA
     Indication: PARKINSON^S DISEASE
     Dosage: MORNING DOSE: 8 ML CONTINOUS DOSE: 4,6 ML/H EXTRA: 1,6 ML
     Route: 050
     Dates: start: 20130604
  2. WARAN [Concomitant]
     Active Substance: WARFARIN SODIUM
     Indication: PRODUCT USED FOR UNKNOWN INDICATION

REACTIONS (8)
  - Musculoskeletal stiffness [Unknown]
  - Muscle spasms [Unknown]
  - Haemoglobin decreased [Recovered/Resolved]
  - Fatigue [Unknown]
  - Device occlusion [Unknown]
  - Abdominal pain upper [Unknown]
  - Device alarm issue [Unknown]
  - Haemoglobin decreased [Not Recovered/Not Resolved]

NARRATIVE: CASE EVENT DATE: 201307
